FAERS Safety Report 6347303-1 (Version None)
Quarter: 2009Q3

REPORT INFORMATION
  Report Type: 
  Country: None (occurrence: None)
  Receive Date: 20090908
  Receipt Date: 20090908
  Transmission Date: 20100115
  Serious: Yes (Other)
  Sender: FDA-Public Use
  Company Number: None

PATIENT
  Age: 14 Year
  Sex: Female
  Weight: 71.2147 kg

DRUGS (2)
  1. NAMENDA [Suspect]
     Indication: DRUG INEFFECTIVE
     Dosage: 5MG ONCE EVERY MORNING PO
     Route: 048
     Dates: start: 20090903, end: 20090911
  2. NAMENDA [Suspect]
     Indication: TOURETTE'S DISORDER
     Dosage: 5MG ONCE EVERY MORNING PO
     Route: 048
     Dates: start: 20090903, end: 20090911

REACTIONS (5)
  - CONVULSION [None]
  - DYSTONIA [None]
  - MUSCLE SPASMS [None]
  - MYALGIA [None]
  - TENSION [None]
